FAERS Safety Report 13480128 (Version 6)
Quarter: 2017Q3

REPORT INFORMATION
  Report Type: Spontaneous
  Country: KR (occurrence: KR)
  Receive Date: 20170425
  Receipt Date: 20170824
  Transmission Date: 20171127
  Serious: Yes (Hospitalization, Other)
  Sender: FDA-Public Use
  Company Number: KR-009507513-1704KOR010975

PATIENT
  Age: 36 Year
  Sex: Female
  Weight: 58.5 kg

DRUGS (55)
  1. EMEND (FOSAPREPITANT DIMEGLUMINE) [Suspect]
     Active Substance: FOSAPREPITANT DIMEGLUMINE
     Dosage: 150 MG, ONCE
     Route: 042
     Dates: start: 20160629, end: 20160629
  2. EMEND (FOSAPREPITANT DIMEGLUMINE) [Suspect]
     Active Substance: FOSAPREPITANT DIMEGLUMINE
     Dosage: 150 MG, ONCE
     Route: 042
     Dates: start: 20160719, end: 20160719
  3. MABTHERA [Concomitant]
     Active Substance: RITUXIMAB
     Dosage: 600 MG, ONCE, CYCLE 2
     Route: 042
     Dates: start: 20160510, end: 20160510
  4. VINCRISTINE SULFATE. [Concomitant]
     Active Substance: VINCRISTINE SULFATE
     Dosage: 1.67 MG, ONCE, CYCLE 4
     Route: 042
     Dates: start: 20160629, end: 20160629
  5. SOLONDO [Concomitant]
     Active Substance: PREDNISOLONE
     Dosage: 20 TABLETS, QD
     Route: 048
     Dates: start: 20160607, end: 20160611
  6. SOLONDO [Concomitant]
     Active Substance: PREDNISOLONE
     Dosage: 20 TABLETS, QD
     Route: 048
     Dates: start: 20160629, end: 20160703
  7. SOLONDO [Concomitant]
     Active Substance: PREDNISOLONE
     Dosage: 20 TABLETS, QD
     Route: 048
     Dates: start: 20160719, end: 20160723
  8. ALOXI [Concomitant]
     Active Substance: PALONOSETRON HYDROCHLORIDE
     Dosage: 0.25 MG, ONCE
     Route: 042
     Dates: start: 20160629, end: 20160629
  9. ULTRACET [Concomitant]
     Active Substance: ACETAMINOPHEN\TRAMADOL HYDROCHLORIDE
     Indication: PAIN
     Dosage: 1 TABLET, BID
     Route: 048
     Dates: start: 20160408, end: 20160525
  10. VINCRISTINE SULFATE. [Concomitant]
     Active Substance: VINCRISTINE SULFATE
     Dosage: 1.69 MG, ONCE, CYCLE 5
     Route: 042
     Dates: start: 20160719, end: 20160719
  11. VIREAD [Concomitant]
     Active Substance: TENOFOVIR DISOPROXIL FUMARATE
     Indication: HEPATITIS B
     Dosage: 300 MG, QD
     Route: 048
     Dates: start: 20160419
  12. EMEND (FOSAPREPITANT DIMEGLUMINE) [Suspect]
     Active Substance: FOSAPREPITANT DIMEGLUMINE
     Dosage: 150 MG, ONCE
     Route: 042
     Dates: start: 20160510, end: 20160510
  13. EMEND (FOSAPREPITANT DIMEGLUMINE) [Suspect]
     Active Substance: FOSAPREPITANT DIMEGLUMINE
     Dosage: 150 MG, ONCE
     Route: 042
     Dates: start: 20160607, end: 20160607
  14. ADRIAMYCIN [Concomitant]
     Active Substance: DOXORUBICIN HYDROCHLORIDE
     Dosage: 60 MG, ONCE, CYCLE 5
     Route: 042
     Dates: start: 20160719, end: 20160719
  15. ADRIAMYCIN [Concomitant]
     Active Substance: DOXORUBICIN HYDROCHLORIDE
     Dosage: 56 MG, ONCE, CYCLE 6
     Route: 042
     Dates: start: 20160809, end: 20160809
  16. ENDOXAN [Concomitant]
     Active Substance: CYCLOPHOSPHAMIDE
     Dosage: 1115 MG, ONCE, CYCLE 3
     Route: 042
     Dates: start: 20160607, end: 20160607
  17. ENDOXAN [Concomitant]
     Active Substance: CYCLOPHOSPHAMIDE
     Dosage: 895 MG, ONCE, CYCLE 4
     Route: 042
     Dates: start: 20160629, end: 20160629
  18. ENDOXAN [Concomitant]
     Active Substance: CYCLOPHOSPHAMIDE
     Dosage: 840 MG, ONCE, CYCLE 6
     Route: 042
     Dates: start: 20160809, end: 20160809
  19. MABTHERA [Concomitant]
     Active Substance: RITUXIMAB
     Dosage: 600 MG, ONCE, CYCLE 3
     Route: 042
     Dates: start: 20160607, end: 20160607
  20. MABTHERA [Concomitant]
     Active Substance: RITUXIMAB
     Dosage: 600 MG, ONCE, CYCLE 6
     Route: 042
     Dates: start: 20160809, end: 20160809
  21. ALOXI [Concomitant]
     Active Substance: PALONOSETRON HYDROCHLORIDE
     Indication: ANTIEMETIC SUPPORTIVE CARE
     Dosage: 0.25 MG, ONCE
     Route: 042
     Dates: start: 20160419, end: 20160419
  22. ALOXI [Concomitant]
     Active Substance: PALONOSETRON HYDROCHLORIDE
     Dosage: 0.25 MG, ONCE
     Route: 042
     Dates: start: 20160510, end: 20160510
  23. ALOXI [Concomitant]
     Active Substance: PALONOSETRON HYDROCHLORIDE
     Dosage: 0.25 MG, ONCE
     Route: 042
     Dates: start: 20160809, end: 20160809
  24. NEULASTA [Concomitant]
     Active Substance: PEGFILGRASTIM
     Indication: PROPHYLAXIS
     Dosage: 6 MG, ONCE
     Route: 058
     Dates: start: 20160421, end: 20160421
  25. NEULASTA [Concomitant]
     Active Substance: PEGFILGRASTIM
     Dosage: 6 MG, ONCE
     Route: 058
     Dates: start: 20160511, end: 20160511
  26. AZEPTIN [Concomitant]
     Active Substance: AZELASTINE HYDROCHLORIDE
     Indication: ALLERGY PROPHYLAXIS
     Dosage: 1 TABLET (1 MG), BID
     Route: 048
     Dates: start: 20160407, end: 20160416
  27. LASIX [Concomitant]
     Active Substance: FUROSEMIDE
     Indication: DYSPNOEA
     Dosage: 20 MG, BID
     Route: 048
     Dates: start: 20160425, end: 20160811
  28. MABTHERA [Concomitant]
     Active Substance: RITUXIMAB
     Indication: CHEMOTHERAPY
     Dosage: 600 MG, ONCE, CYCLE 1
     Route: 042
     Dates: start: 20160419, end: 20160419
  29. VINCRISTINE SULFATE. [Concomitant]
     Active Substance: VINCRISTINE SULFATE
     Indication: CHEMOTHERAPY
     Dosage: 2 MG, ONCE, CYCLE 1
     Route: 042
     Dates: start: 20160419, end: 20160419
  30. SOLONDO [Concomitant]
     Active Substance: PREDNISOLONE
     Dosage: 20 TABLETS, QD
     Route: 048
     Dates: start: 20160510, end: 20160514
  31. CEFTRIAXONE SODIUM. [Concomitant]
     Active Substance: CEFTRIAXONE SODIUM
     Indication: PROPHYLAXIS
     Dosage: 2 G, QD
     Route: 042
     Dates: start: 20160420, end: 20160503
  32. EMEND (FOSAPREPITANT DIMEGLUMINE) [Suspect]
     Active Substance: FOSAPREPITANT DIMEGLUMINE
     Indication: PROPHYLAXIS OF NAUSEA AND VOMITING
     Dosage: 150 MG, ONCE
     Route: 042
     Dates: start: 20160419, end: 20160419
  33. ENDOXAN [Concomitant]
     Active Substance: CYCLOPHOSPHAMIDE
     Dosage: 905 MG, ONCE, CYCLE 5
     Route: 042
     Dates: start: 20160719, end: 20160719
  34. MABTHERA [Concomitant]
     Active Substance: RITUXIMAB
     Dosage: 600 MG, ONCE, CYCLE 5
     Route: 042
     Dates: start: 20160719, end: 20160719
  35. SOLONDO [Concomitant]
     Active Substance: PREDNISOLONE
     Indication: ANTIEMETIC SUPPORTIVE CARE
     Dosage: 20 TABLETS, QD
     Route: 048
     Dates: start: 20160419, end: 20160423
  36. SOLONDO [Concomitant]
     Active Substance: PREDNISOLONE
     Dosage: 20 TABLETS, QD
     Route: 048
     Dates: start: 20160809, end: 20160813
  37. ALOXI [Concomitant]
     Active Substance: PALONOSETRON HYDROCHLORIDE
     Dosage: 0.25 MG, ONCE
     Route: 042
     Dates: start: 20160607, end: 20160607
  38. ALOXI [Concomitant]
     Active Substance: PALONOSETRON HYDROCHLORIDE
     Dosage: 0.25 MG, ONCE
     Route: 042
     Dates: start: 20160719, end: 20160719
  39. EMEND (FOSAPREPITANT DIMEGLUMINE) [Suspect]
     Active Substance: FOSAPREPITANT DIMEGLUMINE
     Dosage: 150 MG, ONCE
     Route: 042
     Dates: start: 20160809, end: 20160809
  40. ADRIAMYCIN [Concomitant]
     Active Substance: DOXORUBICIN HYDROCHLORIDE
     Dosage: 74.5 MG, ONCE, CYCLE 2
     Route: 042
     Dates: start: 20160510, end: 20160510
  41. ENDOXAN [Concomitant]
     Active Substance: CYCLOPHOSPHAMIDE
     Indication: CHEMOTHERAPY
     Dosage: 1200 MG, ONCE, CYCLE 1
     Route: 042
     Dates: start: 20160419, end: 20160419
  42. VINCRISTINE SULFATE. [Concomitant]
     Active Substance: VINCRISTINE SULFATE
     Dosage: 2 MG, ONCE, CYCLE 3
     Route: 042
     Dates: start: 20160607, end: 20160607
  43. VINCRISTINE SULFATE. [Concomitant]
     Active Substance: VINCRISTINE SULFATE
     Dosage: 1.56 MG, ONCE, CYCLE 6
     Route: 042
     Dates: start: 20160809, end: 20160809
  44. CODEINE PHOSPHATE [Concomitant]
     Active Substance: CODEINE PHOSPHATE
     Indication: COUGH
     Dosage: 1 TABLET, QD
     Route: 048
     Dates: start: 20160409, end: 20160421
  45. ADRIAMYCIN [Concomitant]
     Active Substance: DOXORUBICIN HYDROCHLORIDE
     Indication: CHEMOTHERAPY
     Dosage: 78.5 MG, ONCE, CYCLE 1
     Route: 042
     Dates: start: 20160419, end: 20160419
  46. MABTHERA [Concomitant]
     Active Substance: RITUXIMAB
     Dosage: 600 MG, ONCE, CYCLE 4
     Route: 042
     Dates: start: 20160629, end: 20160629
  47. VINCRISTINE SULFATE. [Concomitant]
     Active Substance: VINCRISTINE SULFATE
     Dosage: 2 MG, ONCE, CYCLE 2
     Route: 042
     Dates: start: 20160510, end: 20160510
  48. CEFOTAXIME SODIUM [Concomitant]
     Active Substance: CEFOTAXIME SODIUM
     Indication: PROPHYLAXIS
     Dosage: 2 G, TID
     Route: 042
     Dates: start: 20160410, end: 20160419
  49. BESZYME [Concomitant]
     Indication: PROPHYLAXIS
     Dosage: 1 TABLET, TID
     Route: 048
     Dates: start: 20160425, end: 20160507
  50. MEGACE F [Concomitant]
     Indication: PROPHYLAXIS
     Dosage: 5 ML, QD
     Route: 048
     Dates: start: 20160420, end: 20160425
  51. ADRIAMYCIN [Concomitant]
     Active Substance: DOXORUBICIN HYDROCHLORIDE
     Dosage: 74.5 MG, ONCE, CYCLE 3
     Route: 042
     Dates: start: 20160607, end: 20160607
  52. ADRIAMYCIN [Concomitant]
     Active Substance: DOXORUBICIN HYDROCHLORIDE
     Dosage: 69.6 MG, ONCE, CYCLE 4
     Route: 042
     Dates: start: 20160629, end: 20160629
  53. ENDOXAN [Concomitant]
     Active Substance: CYCLOPHOSPHAMIDE
     Dosage: 1115 MG, ONCE, CYCLE 2
     Route: 042
     Dates: start: 20160510, end: 20160510
  54. DUPHALAC [Concomitant]
     Active Substance: LACTULOSE
     Indication: CONSTIPATION PROPHYLAXIS
     Dosage: 15 ML, TID
     Route: 048
     Dates: start: 20160414, end: 20160417
  55. PANTOLINE TABLETS [Concomitant]
     Indication: PROPHYLAXIS AGAINST GASTROINTESTINAL ULCER
     Dosage: 1 TABLET (20 MG), QD
     Route: 048
     Dates: start: 20160419

REACTIONS (7)
  - Decreased appetite [Recovered/Resolved]
  - Neutropenia [Recovered/Resolved]
  - Nausea [Recovered/Resolved]
  - Neutropenia [Recovered/Resolved]
  - Neutropenia [Recovered/Resolved]
  - Stomatitis [Recovered/Resolved]
  - Nausea [Recovered/Resolved]

NARRATIVE: CASE EVENT DATE: 2016
